FAERS Safety Report 15685539 (Version 3)
Quarter: 2019Q3

REPORT INFORMATION
  Report Type: Spontaneous
  Country: JP (occurrence: JP)
  Receive Date: 20181204
  Receipt Date: 20190702
  Transmission Date: 20191004
  Serious: Yes (Hospitalization, Other)
  Sender: FDA-Public Use
  Company Number: JP-BRISTOL-MYERS SQUIBB COMPANY-BMS-2018-093461

PATIENT
  Age: 70 Year
  Sex: Female
  Weight: 34.4 kg

DRUGS (3)
  1. OPDIVO [Suspect]
     Active Substance: NIVOLUMAB
     Indication: GASTRIC CANCER RECURRENT
     Dosage: 240 MG, Q2WK
     Route: 041
     Dates: start: 201805
  2. TOFOGLIFLOZIN [Concomitant]
     Active Substance: TOFOGLIFLOZIN
     Indication: TYPE 2 DIABETES MELLITUS
     Dosage: 20 MILLIGRAM
     Route: 065
     Dates: start: 2012
  3. ANAGLIPTIN [Concomitant]
     Active Substance: ANAGLIPTIN
     Indication: TYPE 2 DIABETES MELLITUS
     Dosage: 200 MILLIGRAM
     Route: 065
     Dates: start: 2012

REACTIONS (1)
  - Type 1 diabetes mellitus [Recovered/Resolved]

NARRATIVE: CASE EVENT DATE: 201809
